FAERS Safety Report 4423426-9 (Version None)
Quarter: 2004Q3

REPORT INFORMATION
  Report Type: 
  Country: None (occurrence: None)
  Receive Date: 20040713
  Receipt Date: 20040322
  Transmission Date: 20050211
  Serious: No
  Sender: FDA-Public Use
  Company Number: PHEH2004US03340

PATIENT
  Age: 72 Year
  Sex: Female

DRUGS (1)
  1. ELIDEL [Suspect]
     Indication: SKIN IRRITATION
     Dosage: 1% BID
     Dates: start: 20040321

REACTIONS (1)
  - EYE IRRITATION [None]
